FAERS Safety Report 6286175-0 (Version None)
Quarter: 2009Q3

REPORT INFORMATION
  Report Type: 
  Country: None (occurrence: None)
  Receive Date: 20090728
  Receipt Date: 20090720
  Transmission Date: 20100115
  Serious: Yes (Hospitalization)
  Sender: FDA-Public Use
  Company Number: FR-TEVA-202881ISR

PATIENT
  Age: 56 Year
  Sex: Male

DRUGS (4)
  1. CISPLATIN [Suspect]
     Indication: ADENOCARCINOMA
     Route: 042
     Dates: start: 20090313, end: 20090410
  2. GEMCITABINE [Suspect]
     Indication: ADENOCARCINOMA
     Route: 042
     Dates: start: 20090313, end: 20090410
  3. GEMCITABINE [Suspect]
  4. ONDANSETRON HYDROCHLORIDE [Concomitant]
     Indication: CHEMOTHERAPY
     Route: 048

REACTIONS (2)
  - NECROSIS ISCHAEMIC [None]
  - VASCULITIS NECROTISING [None]
